FAERS Safety Report 8278299-3 (Version None)
Quarter: 2012Q2

REPORT INFORMATION
  Report Type: 
  Country: None (occurrence: None)
  Receive Date: 20120412
  Receipt Date: 20110809
  Transmission Date: 20120825
  Serious: No
  Sender: FDA-Public Use
  Company Number: US-ASTRAZENECA-2011SE47811

PATIENT
  Age: 44 Year
  Sex: Female

DRUGS (2)
  1. PRILOSEC OTC [Suspect]
     Route: 048
  2. NEXIUM [Suspect]
     Route: 048

REACTIONS (6)
  - CYSTITIS NONINFECTIVE [None]
  - DYSPEPSIA [None]
  - WRONG DRUG ADMINISTERED [None]
  - DRUG DOSE OMISSION [None]
  - FUNGAL INFECTION [None]
  - COLITIS [None]
